FAERS Safety Report 4329942-2 (Version None)
Quarter: 2004Q1

REPORT INFORMATION
  Report Type: 
  Country: None (occurrence: None)
  Receive Date: 20040329
  Receipt Date: 20040315
  Transmission Date: 20041129
  Serious: Yes (Hospitalization)
  Sender: FDA-Public Use
  Company Number: 2004SE00870

PATIENT
  Age: 44 Year
  Sex: Male
  Weight: 85 kg

DRUGS (5)
  1. CRESTOR [Suspect]
     Indication: HYPERCHOLESTEROLAEMIA
     Dosage: 10 MG QD PO
     Route: 048
     Dates: start: 20030819, end: 20040130
  2. PANTOPRAZOL [Concomitant]
  3. TEMAZEPAM [Concomitant]
  4. AMOXICILLIN [Concomitant]
  5. ZITHROMAX [Concomitant]

REACTIONS (10)
  - ANGINA PECTORIS [None]
  - ASPARTATE AMINOTRANSFERASE INCREASED [None]
  - BLOOD CREATINE PHOSPHOKINASE INCREASED [None]
  - BRADYCARDIA [None]
  - CIRCULATORY COLLAPSE [None]
  - HYPOTENSION [None]
  - MYALGIA [None]
  - MYOSITIS [None]
  - PROCEDURAL COMPLICATION [None]
  - WEIGHT DECREASED [None]
